FAERS Safety Report 8649355 (Version 2)
Quarter: 2012Q4

REPORT INFORMATION
  Report Type: 
  Country: US (occurrence: US)
  Receive Date: 20120705
  Receipt Date: 20120830
  Transmission Date: 20130627
  Serious: Yes (Other)
  Sender: FDA-Public Use
  Company Number: US-PERRIGO-12US005578

PATIENT
  Age: 43 Year
  Sex: Female
  Weight: 146.3 kg

DRUGS (7)
  1. PSEUDOEPHEDRINE HYDROCHLORIDE  12 HOUR 120 MG 054 [Suspect]
     Indication: SINUS CONGESTION
     Dosage: 120 mg, single
     Route: 048
     Dates: start: 20120618, end: 20120618
  2. WELLBUTRIN [Concomitant]
     Indication: BIPOLAR DISORDER
     Dosage: 150 mg, UNK
     Route: 048
     Dates: start: 201106
  3. RESTORIL [Concomitant]
     Indication: BIPOLAR DISORDER
     Dosage: 15 mg, prn
     Route: 048
     Dates: start: 201106
  4. TRILEPTAL [Concomitant]
     Indication: BIPOLAR DISORDER
     Dosage: 300 mg, UNK
     Route: 048
     Dates: start: 201106
  5. KLONOPIN [Concomitant]
     Indication: BIPOLAR DISORDER
     Dosage: 1 mg, UNK
     Route: 048
     Dates: start: 201106
  6. CELEXA [Concomitant]
     Indication: BIPOLAR DISORDER
     Dosage: 40 mg, UNK
     Route: 048
     Dates: start: 201106
  7. RISPERDAL [Concomitant]
     Indication: BIPOLAR DISORDER
     Dosage: 2 mg, UNK
     Route: 048
     Dates: start: 201106

REACTIONS (2)
  - Convulsion [Recovered/Resolved]
  - Blood pressure increased [Recovered/Resolved]
